FAERS Safety Report 25424772 (Version 2)
Quarter: 2025Q3

REPORT INFORMATION
  Report Type: Report from Study
  Country: IN (occurrence: IN)
  Receive Date: 20250611
  Receipt Date: 20250704
  Transmission Date: 20251020
  Serious: Yes (Death, Hospitalization, Other)
  Sender: Vantive US Healthcare
  Company Number: IN-VANTIVE-2025VAN002659

PATIENT
  Age: 84 Year
  Sex: Female

DRUGS (2)
  1. DIANEAL PD-2 PERITONEAL DIALYSIS SOLUTION WITH DEXTROSE [Suspect]
     Active Substance: CALCIUM CHLORIDE\DEXTROSE\MAGNESIUM CHLORIDE\SODIUM CHLORIDE\SODIUM LACTATE
     Indication: Renal failure
     Route: 033
  2. UNSPECIFIED INGREDIENT [Suspect]
     Active Substance: UNSPECIFIED INGREDIENT
     Route: 065

REACTIONS (2)
  - Pneumonia [Fatal]
  - Accident [Recovered/Resolved]
